FAERS Safety Report 15150766 (Version 2)
Quarter: 2018Q4

REPORT INFORMATION
  Report Type: Report from Study
  Country: US (occurrence: US)
  Receive Date: 20180716
  Receipt Date: 20181119
  Transmission Date: 20190204
  Serious: No
  Sender: FDA-Public Use
  Company Number: PHEH2018US027808

PATIENT
  Sex: Male

DRUGS (1)
  1. ENTRESTO [Suspect]
     Active Substance: SACUBITRIL\VALSARTAN
     Indication: CARDIAC FAILURE
     Dosage: 0.5 DF (SACUBITRIL 24 MG AND VALSARTAN 26 MG), BID
     Route: 048

REACTIONS (8)
  - Fatigue [Unknown]
  - Mobility decreased [Unknown]
  - Hypotension [Unknown]
  - Heart valve incompetence [Unknown]
  - Cardiomegaly [Unknown]
  - Wrong technique in product usage process [Unknown]
  - Palpitations [Unknown]
  - Prescribed underdose [Unknown]
